FAERS Safety Report 17162814 (Version 1)
Quarter: 2019Q4

REPORT INFORMATION
  Report Type: Spontaneous
  Country: US (occurrence: US)
  Receive Date: 20191123
  Receipt Date: 20191123
  Transmission Date: 20200122
  Serious: No
  Sender: FDA-Public Use
  Company Number: None

PATIENT
  Age: 56 Year
  Sex: Female

DRUGS (1)
  1. ACTEMRA ACTPEN [Suspect]
     Active Substance: TOCILIZUMAB
     Dosage: ?          OTHER DOSE:162MG/0.9M;OTHER FREQUENCY:OTHER;?
     Route: 058
     Dates: start: 201911

REACTIONS (1)
  - Dizziness [None]

NARRATIVE: CASE EVENT DATE: 20191123
